FAERS Safety Report 6660693-5 (Version None)
Quarter: 2010Q1

REPORT INFORMATION
  Report Type: 
  Country: None (occurrence: None)
  Receive Date: 20100331
  Receipt Date: 20100322
  Transmission Date: 20100710
  Serious: Yes (Other)
  Sender: FDA-Public Use
  Company Number: DE-ASTRAZENECA-2010SE12647

PATIENT
  Age: 75 Year
  Sex: Male

DRUGS (10)
  1. ESOMEPRAZOLE [Suspect]
     Indication: PROPHYLAXIS AGAINST GASTROINTESTINAL ULCER
     Dosage: 40-80 MG/DAY
     Route: 042
  2. INSULIN [Concomitant]
  3. HEPARIN [Concomitant]
     Dosage: 800 IU/H
  4. FUROSEMIDE [Concomitant]
     Dosage: 40-120 MG/DAY
  5. AMIODARONE HCL [Concomitant]
  6. MEROPENEM [Concomitant]
  7. LINEZOLID [Concomitant]
  8. PROPOFOL [Concomitant]
     Indication: SEDATION
  9. SUFENTANIL [Concomitant]
     Indication: SEDATION
  10. CATECHOLAMINES [Concomitant]

REACTIONS (1)
  - RHABDOMYOLYSIS [None]
